FAERS Safety Report 7519329-3 (Version None)
Quarter: 2011Q2

REPORT INFORMATION
  Report Type: 
  Country: None (occurrence: None)
  Receive Date: 20110602
  Receipt Date: 20110524
  Transmission Date: 20111010
  Serious: Yes (Disabling)
  Sender: FDA-Public Use
  Company Number: FR-ASTRAZENECA-2011SE32937

PATIENT
  Age: 7099 Day
  Sex: Female

DRUGS (7)
  1. PREDNISOLONE [Suspect]
     Indication: AUTOIMMUNE HEPATITIS
     Route: 048
  2. NEXIUM [Suspect]
     Indication: PROPHYLAXIS AGAINST GASTROINTESTINAL ULCER
     Route: 048
  3. CALCIUM CARBONATE [Suspect]
     Dosage: 1000 MG / 880 UI 1 DF DAILY
     Route: 048
  4. ASPIRIN [Suspect]
     Route: 048
     Dates: start: 20110425
  5. ASPIRIN [Suspect]
     Indication: THROMBOSIS
     Route: 048
     Dates: start: 20100601, end: 20110421
  6. AZATHIOPRINE [Suspect]
     Indication: AUTOIMMUNE HEPATITIS
     Route: 048
     Dates: start: 20070101
  7. ACTONEL [Suspect]
     Route: 048

REACTIONS (4)
  - CONJUNCTIVAL OEDEMA [None]
  - PERIORBITAL HAEMATOMA [None]
  - OCULAR HYPERTENSION [None]
  - RETINAL ARTERY OCCLUSION [None]
